FAERS Safety Report 14898465 (Version 11)
Quarter: 2018Q3

REPORT INFORMATION
  Report Type: Report from Study
  Country: IL (occurrence: IL)
  Receive Date: 20180515
  Receipt Date: 20180919
  Transmission Date: 20181010
  Serious: Yes (Other)
  Sender: FDA-Public Use
  Company Number: IL-PFIZER INC-2018187083

PATIENT
  Age: 60 Year
  Sex: Male

DRUGS (1)
  1. SUTENT [Suspect]
     Active Substance: SUNITINIB MALATE
     Indication: RENAL CELL CARCINOMA
     Dosage: 50 MG, CYCLIC (ONCE A DAY, 4 WEEKS ON AND 2 WEEKS OFF)
     Route: 048
     Dates: start: 20180503

REACTIONS (11)
  - Hypertension [Not Recovered/Not Resolved]
  - Heart rate increased [Not Recovered/Not Resolved]
  - Neuropathy peripheral [Recovering/Resolving]
  - Asthenia [Not Recovered/Not Resolved]
  - Diarrhoea [Recovered/Resolved]
  - Yellow skin [Not Recovered/Not Resolved]
  - Decreased appetite [Not Recovered/Not Resolved]
  - Constipation [Recovered/Resolved]
  - Rectal haemorrhage [Recovered/Resolved]
  - Condition aggravated [Not Recovered/Not Resolved]
  - Anal haemorrhage [Recovered/Resolved]

NARRATIVE: CASE EVENT DATE: 2018
